FAERS Safety Report 12927600 (Version 1)
Quarter: 2016Q4

REPORT INFORMATION
  Report Type: Other
  Country: GB (occurrence: FR)
  Receive Date: 20161109
  Receipt Date: 20161109
  Transmission Date: 20170207
  Serious: Yes (Other)
  Sender: FDA-Public Use
  Company Number: FR-INTERNATIONAL MEDICATION SYSTEMS, LIMITED-1059394

PATIENT
  Age: 17 Year
  Sex: Male

DRUGS (1)
  1. NOREPINEPHRINE [Suspect]
     Active Substance: NOREPINEPHRINE\NOREPINEPHRINE BITARTRATE
     Route: 040

REACTIONS (2)
  - Stress cardiomyopathy [Recovered/Resolved]
  - Incorrect drug dosage form administered [Recovered/Resolved]
